FAERS Safety Report 21283880 (Version 5)
Quarter: 2023Q2

REPORT INFORMATION
  Report Type: Spontaneous
  Country: AU (occurrence: AU)
  Receive Date: 20220901
  Receipt Date: 20230627
  Transmission Date: 20230721
  Serious: Yes (Hospitalization, Other)
  Sender: FDA-Public Use
  Company Number: AU-ALLERGAN-2228321US

PATIENT
  Age: 45 Year
  Sex: Male

DRUGS (25)
  1. ASENAPINE MALEATE [Suspect]
     Active Substance: ASENAPINE MALEATE
     Indication: Prophylaxis
     Route: 048
     Dates: start: 202201
  2. ASENAPINE MALEATE [Suspect]
     Active Substance: ASENAPINE MALEATE
     Indication: Prophylaxis
     Dosage: DAILY DOSE: 30.0 MG, FORM: UNKNOWN
     Route: 048
  3. ASENAPINE MALEATE [Suspect]
     Active Substance: ASENAPINE MALEATE
     Indication: Prophylaxis
     Route: 048
     Dates: start: 202201, end: 202201
  4. ASENAPINE MALEATE [Suspect]
     Active Substance: ASENAPINE MALEATE
     Indication: Prophylaxis
     Dosage: AT BEDTIME
     Route: 048
     Dates: start: 2021, end: 202110
  5. ASENAPINE MALEATE [Suspect]
     Active Substance: ASENAPINE MALEATE
     Indication: Prophylaxis
     Route: 065
     Dates: start: 202201
  6. ASENAPINE MALEATE [Suspect]
     Active Substance: ASENAPINE MALEATE
     Indication: Prophylaxis
     Route: 048
  7. ASENAPINE MALEATE [Suspect]
     Active Substance: ASENAPINE MALEATE
     Indication: Prophylaxis
     Route: 048
  8. ASENAPINE MALEATE [Suspect]
     Active Substance: ASENAPINE MALEATE
     Indication: Prophylaxis
     Route: 048
     Dates: start: 201912
  9. ARIPIPRAZOLE [Suspect]
     Active Substance: ARIPIPRAZOLE
     Indication: Prophylaxis
     Dosage: DAILY DOSE: 20.0 MG, FREQUENCY: AT BEDTIME
     Route: 048
     Dates: start: 202205
  10. ARIPIPRAZOLE [Suspect]
     Active Substance: ARIPIPRAZOLE
     Indication: Prophylaxis
     Dosage: DAILY DOSE: 30.0 MG, FREQUENCY: AT BEDTIME
     Route: 048
     Dates: start: 201912
  11. CLOMIPRAMINE HYDROCHLORIDE [Suspect]
     Active Substance: CLOMIPRAMINE HYDROCHLORIDE
     Indication: Schizophrenia
     Dosage: DOSE DESC: 25 MG, TAKE 5 TABLETS IN THE EVENING
     Route: 048
     Dates: start: 201912
  12. CLOMIPRAMINE HYDROCHLORIDE [Suspect]
     Active Substance: CLOMIPRAMINE HYDROCHLORIDE
     Indication: Schizophrenia
     Dosage: DAILY DOSE: 150.0 MG
     Route: 048
     Dates: start: 2018
  13. CLOZAPINE [Suspect]
     Active Substance: CLOZAPINE
     Indication: Paranoia
     Dosage: 5 TIMES PER DAY, OD
     Dates: start: 20220225
  14. CLOZAPINE [Suspect]
     Active Substance: CLOZAPINE
     Indication: Paranoia
     Dosage: 5 TIMES PER DAY, OD
     Dates: start: 20220223, end: 20220224
  15. METFORMIN [Suspect]
     Active Substance: METFORMIN HYDROCHLORIDE
     Indication: Type 2 diabetes mellitus
     Dosage: DAILY DOSE: 500.0 MG, FREQUENCY: AT BEDTIME
     Dates: start: 2021
  16. RISPERIDONE [Suspect]
     Active Substance: RISPERIDONE
     Indication: Product used for unknown indication
     Dosage: DOSE DESC: UNK
     Dates: start: 202111
  17. GEMFIBROZIL [Concomitant]
     Active Substance: GEMFIBROZIL
     Indication: Product used for unknown indication
  18. PALIPERIDONE [Concomitant]
     Active Substance: PALIPERIDONE
     Indication: Product used for unknown indication
  19. REXULTI [Concomitant]
     Active Substance: BREXPIPRAZOLE
     Indication: Product used for unknown indication
     Dates: end: 2018
  20. ASCORBIC ACID [Concomitant]
     Active Substance: ASCORBIC ACID
     Indication: Product used for unknown indication
  21. GEMFIBROZIL [Suspect]
     Active Substance: GEMFIBROZIL
     Indication: Hypercholesterolaemia
  22. ELEVIT [MINERALS NOS;VITAMINS NOS] [Concomitant]
     Indication: Product used for unknown indication
  23. ATORVASTATIN [Concomitant]
     Active Substance: ATORVASTATIN
     Indication: Product used for unknown indication
  24. RISPERIDONE [Concomitant]
     Active Substance: RISPERIDONE
     Indication: Product used for unknown indication
     Dates: start: 202111
  25. FERROUS FUMARATE [Concomitant]
     Active Substance: FERROUS FUMARATE
     Indication: Iron deficiency anaemia
     Dosage: DAILY DOSE: 200.0 MG, FREQUENCY: AT BEDTIME

REACTIONS (26)
  - Lower respiratory tract infection [Unknown]
  - Myocarditis [Unknown]
  - Electrocardiogram QT prolonged [Unknown]
  - Leukopenia [Unknown]
  - Suicidal ideation [Unknown]
  - Syncope [Recovered/Resolved]
  - Schizophrenia [Unknown]
  - Type 2 diabetes mellitus [Unknown]
  - Iron deficiency anaemia [Unknown]
  - Social anxiety disorder [Unknown]
  - COVID-19 [Unknown]
  - Cholelithiasis [Unknown]
  - Microcytic anaemia [Unknown]
  - Liver function test abnormal [Unknown]
  - SARS-CoV-2 test positive [Unknown]
  - Product use in unapproved indication [Unknown]
  - Condition aggravated [Unknown]
  - Malaise [Unknown]
  - Pancreatic steatosis [Unknown]
  - Prostatomegaly [Unknown]
  - Vomiting [Unknown]
  - Weight increased [Unknown]
  - Drug ineffective [Unknown]
  - White blood cell count decreased [Recovered/Resolved]
  - C-reactive protein increased [Recovered/Resolved]
  - Loss of personal independence in daily activities [Recovered/Resolved]
